FAERS Safety Report 7322722-5 (Version None)
Quarter: 2011Q1

REPORT INFORMATION
  Report Type: 
  Country: None (occurrence: None)
  Receive Date: 20110301
  Receipt Date: 20110113
  Transmission Date: 20110831
  Serious: Yes (Other)
  Sender: FDA-Public Use
  Company Number: US-JNJFOC-20110207485

PATIENT

DRUGS (14)
  1. VINCRISTINE [Suspect]
     Indication: PERIPHERAL T-CELL LYMPHOMA UNSPECIFIED
     Dosage: MAX. 2 MG  DAYS 4 AND 11
     Route: 042
  2. LEUCOVORIN CALCIUM [Concomitant]
     Indication: PROPHYLAXIS
     Route: 065
  3. PREDNISONE [Concomitant]
     Indication: PROPHYLAXIS
     Route: 047
  4. ANTIFUNGAL [Concomitant]
     Indication: PROPHYLAXIS
     Dosage: DAYS 4-13 OR UNTIL GRANULOCYTE RECOVERY
     Route: 065
  5. DEXAMETHASONE [Suspect]
     Indication: PERIPHERAL T-CELL LYMPHOMA UNSPECIFIED
     Dosage: INTRAVENOUS OR ORAL, 4 TIMES DAILY  DAYS 1 - 4 AND 11 - 14
     Route: 065
  6. MESNA [Concomitant]
     Indication: PROPHYLAXIS
     Route: 065
  7. DOXORUBICIN HCL [Suspect]
     Indication: PERIPHERAL T-CELL LYMPHOMA UNSPECIFIED
     Dosage: CYCLES 1,3,5,7. OVER 1 HOUR DAY 2
     Route: 042
  8. METHOTREXATE [Suspect]
     Indication: PERIPHERAL T-CELL LYMPHOMA UNSPECIFIED
     Dosage: INTRAVENOUS CONTINUOUS INFUSION (IVCI) OVER 22 HOURS ON DAY 2, CYCLES 2,4,6,8
     Route: 042
  9. METHOTREXATE [Suspect]
     Dosage: OVER 2 HRS DAY 2, CYCLES 2,4,6,8
     Route: 042
  10. COMBINATIONS OF ANTIBACTERIALS [Concomitant]
     Indication: PROPHYLAXIS
     Route: 065
  11. CYCLOPHOSPHAMIDE [Suspect]
     Indication: PERIPHERAL T-CELL LYMPHOMA UNSPECIFIED
     Dosage: CYCLES 1,3,5,7. OVER 3 HOURS EVERY 12 HRS X 6 DOSE DAYS 1-3
     Route: 042
  12. CYTARABINE [Suspect]
     Indication: PERIPHERAL T-CELL LYMPHOMA UNSPECIFIED
     Dosage: CYCLES 2,4,6,8. OVER 2 HRS EVERY 12 HRS X 4. DAYS 3-4
     Route: 042
  13. ANTIVIRALS [Concomitant]
     Indication: PROPHYLAXIS
     Dosage: DAYS 4-13 OR UNTIL GRANULOCYTE RECOVERY
     Route: 065
  14. GRANULOCYTE COLONY STIMULATING FACTOR [Concomitant]
     Indication: PROPHYLAXIS
     Route: 065

REACTIONS (1)
  - HAEMORRHAGE [None]
